FAERS Safety Report 23136825 (Version 1)
Quarter: 2023Q4

REPORT INFORMATION
  Report Type: Spontaneous
  Country: IT (occurrence: IT)
  Receive Date: 20231102
  Receipt Date: 20231102
  Transmission Date: 20240110
  Serious: Yes (Hospitalization)
  Sender: FDA-Public Use
  Company Number: IT-ROCHE-2194937

PATIENT
  Age: 60 Year
  Sex: Female
  Weight: 70 kg

DRUGS (38)
  1. CAPECITABINE [Suspect]
     Active Substance: CAPECITABINE
     Indication: HER2 positive breast cancer
     Dosage: FREQUENCY: OTHER MOST RECENT DOSE PRIOR TO THE EVENT: 05/AUG/2022
     Route: 048
     Dates: start: 20220805, end: 20220824
  2. DOCETAXEL [Concomitant]
     Active Substance: DOCETAXEL\DOCETAXEL ANHYDROUS
     Indication: HER2 positive breast cancer
     Dosage: ONCE IN 3 WEEKS
     Route: 042
     Dates: start: 20171118
  3. DOCETAXEL [Concomitant]
     Active Substance: DOCETAXEL\DOCETAXEL ANHYDROUS
     Indication: HER2 positive breast cancer
     Dosage: MOST RECENT DOSE WAS RECIVED ON 14/APR/2018
     Route: 042
     Dates: start: 20180414
  4. PERTUZUMAB [Concomitant]
     Active Substance: PERTUZUMAB
     Indication: HER2 positive breast cancer
     Dosage: ONCE IN 3 WEEKS
     Route: 042
     Dates: start: 20171118, end: 20171118
  5. PERTUZUMAB [Concomitant]
     Active Substance: PERTUZUMAB
     Indication: HER2 positive breast cancer
     Dosage: MOST RECENT DOSE PRIOR TO THE EVENT: 09/DEC/2017
     Route: 042
     Dates: start: 20171209, end: 20200918
  6. TRASTUZUMAB [Concomitant]
     Active Substance: TRASTUZUMAB
     Indication: HER2 positive breast cancer
     Dosage: ONCE IN 3 WEEKS
     Route: 042
     Dates: start: 20171118, end: 20171118
  7. TRASTUZUMAB [Concomitant]
     Active Substance: TRASTUZUMAB
     Indication: HER2 positive breast cancer
     Dosage: MOST RECENT DOSE PRIOR TO THE EVENT: 09/DEC/2017
     Route: 042
     Dates: start: 20171209, end: 20210521
  8. TRASTUZUMAB [Concomitant]
     Active Substance: TRASTUZUMAB
     Indication: HER2 positive breast cancer
     Dosage: MOST RECENT DOSE PRIOR TO THE EVENT: 27/MAY/2022
     Route: 042
     Dates: start: 20220527, end: 20220729
  9. RIBOCICLIB [Concomitant]
     Active Substance: RIBOCICLIB
     Indication: HER2 positive breast cancer
     Dosage: DAILY DOSE: 200 MILLIGRAM
     Route: 048
     Dates: start: 20210618
  10. RIBOCICLIB [Concomitant]
     Active Substance: RIBOCICLIB
     Indication: HER2 positive breast cancer
     Dosage: MOST RECENT DOSE PRIOR TO AE 14/JAN/2022
     Route: 048
     Dates: start: 20220114
  11. PEMBROLIZUMAB [Concomitant]
     Active Substance: PEMBROLIZUMAB
     Indication: HER2 positive breast cancer
     Dosage: SINGLE 3 WEEKS
     Route: 042
     Dates: start: 20220204
  12. PEMBROLIZUMAB [Concomitant]
     Active Substance: PEMBROLIZUMAB
     Indication: HER2 positive breast cancer
     Dosage: MOST RECENT DOSE PRIOR TO AE 25/FEB/2022
     Route: 042
     Dates: start: 20220225
  13. CARBOPLATIN [Concomitant]
     Active Substance: CARBOPLATIN
     Indication: HER2 positive breast cancer
     Dosage: SINGLE 3 WEEKS
     Route: 042
     Dates: start: 20220204, end: 20220225
  14. CARBOPLATIN [Concomitant]
     Active Substance: CARBOPLATIN
     Indication: HER2 positive breast cancer
     Dosage: MOST RECENT DOSE PRIOR TO THE EVENT: 27/MAY/2022
     Route: 042
     Dates: start: 20220527
  15. DOXORUBICIN [Concomitant]
     Active Substance: DOXORUBICIN
     Indication: HER2 positive breast cancer
     Dosage: SINGLE 3 WEEKS
     Route: 042
     Dates: start: 20220315
  16. DOXORUBICIN [Concomitant]
     Active Substance: DOXORUBICIN
     Indication: HER2 positive breast cancer
     Dosage: SINGLE 3 WEEKS
     Route: 042
     Dates: start: 20220520
  17. EXEMESTANE [Concomitant]
     Active Substance: EXEMESTANE
     Indication: HER2 positive breast cancer
     Dosage: DAILY DOSE: 25 MILLIGRAM
     Route: 048
     Dates: start: 20180713
  18. EXEMESTANE [Concomitant]
     Active Substance: EXEMESTANE
     Indication: HER2 positive breast cancer
     Dosage: MOST RECENT DOSE PRIOR TO AE 09/OCT/2020
     Route: 048
     Dates: start: 20221009
  19. CYCLOPHOSPHAMIDE [Concomitant]
     Active Substance: CYCLOPHOSPHAMIDE
     Indication: HER2 positive breast cancer
     Dosage: SINGLE 3 WEEKS
     Route: 042
     Dates: start: 20220315
  20. CYCLOPHOSPHAMIDE [Concomitant]
     Active Substance: CYCLOPHOSPHAMIDE
     Indication: HER2 positive breast cancer
     Dosage: MOST RECENT DOSE PRIOR TO AE 20/MAY/2022
     Route: 042
     Dates: start: 20220520
  21. GEMCITABINE [Concomitant]
     Active Substance: GEMCITABINE
     Indication: HER2 positive breast cancer
     Dosage: SINGLE 3 WEEKS
     Route: 042
     Dates: start: 20220527
  22. GEMCITABINE [Concomitant]
     Active Substance: GEMCITABINE
     Indication: HER2 positive breast cancer
     Dosage: MOST RECENT DOSE PRIOR TO 29/JUL/2022
     Route: 042
     Dates: start: 20220729
  23. FULVESTRANT [Concomitant]
     Active Substance: FULVESTRANT
     Indication: HER2 positive breast cancer
     Dosage: SINGLE 3 WEEKS
     Route: 030
     Dates: start: 20210521
  24. FULVESTRANT [Concomitant]
     Active Substance: FULVESTRANT
     Indication: HER2 positive breast cancer
     Dosage: MOST RECENT DOSE PRIOR TO AE 31/DEC/2021
     Route: 030
     Dates: start: 20211231
  25. CHLORPHENIRAMINE MALEATE [Concomitant]
     Active Substance: CHLORPHENIRAMINE MALEATE
     Dates: start: 20171118
  26. CETIRIZINE HYDROCHLORIDE [Concomitant]
     Active Substance: CETIRIZINE HYDROCHLORIDE
     Dosage: ONGOING = CHECKED
     Dates: start: 20190531
  27. ALPRAZOLAM [Concomitant]
     Active Substance: ALPRAZOLAM
     Dosage: ONGOING = CHECKED
     Dates: start: 20180803
  28. DENOSUMAB [Concomitant]
     Active Substance: DENOSUMAB
     Dosage: ONGOING = CHECKED
     Dates: start: 20190315
  29. VEA LIPOGEL [Concomitant]
     Dosage: ONGOING = CHECKED
     Dates: start: 20190215
  30. LEVOSULPIRIDE [Concomitant]
     Active Substance: LEVOSULPIRIDE
     Dates: start: 20171118, end: 20180414
  31. Ecoval [Concomitant]
     Dosage: ONGOING = CHECKED
     Dates: start: 20200424
  32. Decapeptyl [Concomitant]
     Dosage: ONGOING = CHECKED
     Dates: start: 20180713
  33. DEXAMETHASONE [Concomitant]
     Active Substance: DEXAMETHASONE
     Dates: start: 20171118, end: 20180414
  34. LANSOPRAZOLE [Concomitant]
     Active Substance: LANSOPRAZOLE
     Dates: start: 20171118, end: 20180414
  35. LANSOPRAZOLE [Concomitant]
     Active Substance: LANSOPRAZOLE
     Dates: start: 20171208, end: 20180413
  36. LOPERAMIDE [Concomitant]
     Active Substance: LOPERAMIDE
     Indication: Diarrhoea
     Dosage: ONGOING = NOT CHECKED
     Dates: start: 20171119, end: 20180302
  37. PREDNISONE [Concomitant]
     Active Substance: PREDNISONE
     Dates: start: 20171117, end: 20171229
  38. PREDNISONE [Concomitant]
     Active Substance: PREDNISONE
     Dosage: ONGOING = NOT CHECKED
     Dates: start: 20171230, end: 20180503

REACTIONS (2)
  - Pneumonitis [Recovered/Resolved]
  - Diarrhoea [Recovered/Resolved]

NARRATIVE: CASE EVENT DATE: 20220819
